FAERS Safety Report 24342201 (Version 1)
Quarter: 2024Q3

REPORT INFORMATION
  Report Type: Spontaneous
  Country: US (occurrence: US)
  Receive Date: 20240920
  Receipt Date: 20240920
  Transmission Date: 20241016
  Serious: Yes (Other)
  Sender: SANOFI AVENTIS
  Company Number: US-SA-2024SA267738

PATIENT
  Age: 76 Year
  Sex: Male
  Weight: 95.45 kg

DRUGS (1)
  1. DUPIXENT [Suspect]
     Active Substance: DUPILUMAB
     Indication: Dermatitis atopic
     Dosage: 300 MG, QOW
     Route: 058
     Dates: start: 2019

REACTIONS (6)
  - Spinal operation [Unknown]
  - Meibomian gland dysfunction [Unknown]
  - Eye pruritus [Unknown]
  - Eye irritation [Unknown]
  - Dry eye [Unknown]
  - Rash [Not Recovered/Not Resolved]

NARRATIVE: CASE EVENT DATE: 20240822
